FAERS Safety Report 7936788-2 (Version None)
Quarter: 2011Q4

REPORT INFORMATION
  Report Type: 
  Country: None (occurrence: None)
  Receive Date: 20111121
  Receipt Date: 20111107
  Transmission Date: 20120403
  Serious: Yes (Hospitalization)
  Sender: FDA-Public Use
  Company Number: 1000025495

PATIENT
  Age: 82 Year
  Sex: Female

DRUGS (12)
  1. EXELON (RIVASTIGMINE) (RIVASTIGMINE) [Concomitant]
  2. FOSAMAX [Concomitant]
  3. CALCIUM (CALCIUM) (CALCIUM) [Concomitant]
  4. CITALOPRAM HYDROBROMIDE [Suspect]
     Dosage: 10 MG (10 MG, 1 IN 1 D), ORAL, 20 MG (20 MG, 1 IN 1 D), ORAL
     Route: 048
     Dates: start: 20110628, end: 20110703
  5. CITALOPRAM HYDROBROMIDE [Suspect]
     Dosage: 10 MG (10 MG, 1 IN 1 D), ORAL, 20 MG (20 MG, 1 IN 1 D), ORAL
     Route: 048
     Dates: start: 20110704, end: 20110721
  6. FUROSEMIDE [Suspect]
     Dosage: 20 MG (20 MG, 1 IN 1 D), ORAL
     Route: 048
     Dates: start: 20110329
  7. COTRIM FORTE (TRIMETHOPRIM, SULPHAMETHOXAZOLE) (TRIMETHOPRIM, SULPHAME [Concomitant]
  8. METOPROLOL SUCCINATE [Concomitant]
  9. VIANI (FLUCTICASONE PROPIONATE, SALMETEROL XINAFOATE) (FLUCTICASONE PR [Concomitant]
  10. BIFITERAL (LACTULOSE) (LACTULOSE) [Concomitant]
  11. LISINOPRIL [Suspect]
     Dosage: 20 MG (20 MG, 1 IN 1 D0, ORAL, 10 MG (10 MG, 1 IN 1 D), ORAL
     Route: 048
     Dates: start: 20110401, end: 20110705
  12. LISINOPRIL [Suspect]
     Dosage: 20 MG (20 MG, 1 IN 1 D0, ORAL, 10 MG (10 MG, 1 IN 1 D), ORAL
     Route: 048
     Dates: start: 20110706

REACTIONS (5)
  - HYPONATRAEMIA [None]
  - NERVOUS SYSTEM DISORDER [None]
  - DRUG INTERACTION [None]
  - ABNORMAL BEHAVIOUR [None]
  - PERSONALITY CHANGE DUE TO A GENERAL MEDICAL CONDITION [None]
